FAERS Safety Report 20003261 (Version 4)
Quarter: 2021Q4

REPORT INFORMATION
  Report Type: Report from Study
  Country: EG (occurrence: EG)
  Receive Date: 20211027
  Receipt Date: 20211113
  Transmission Date: 20220303
  Serious: Yes (Other)
  Sender: FDA-Public Use
  Company Number: EG-BAYER-2021A237053

PATIENT

DRUGS (2)
  1. EYLEA [Suspect]
     Active Substance: AFLIBERCEPT
     Indication: Macular oedema
     Dosage: INJECTED TWICE (NOT CLEAR IF BOTH EYES)
     Route: 031
     Dates: start: 202107, end: 202107
  2. EYLEA [Suspect]
     Active Substance: AFLIBERCEPT
     Dosage: OD, LAST DOSE RECEIVED
     Route: 031
     Dates: start: 202108

REACTIONS (3)
  - Macular oedema [Not Recovered/Not Resolved]
  - Therapeutic product ineffective [Not Recovered/Not Resolved]
  - Product dose omission issue [Unknown]

NARRATIVE: CASE EVENT DATE: 20210701
